FAERS Safety Report 15465385 (Version 3)
Quarter: 2018Q4

REPORT INFORMATION
  Report Type: Spontaneous
  Country: CN (occurrence: CN)
  Receive Date: 20181004
  Receipt Date: 20181106
  Transmission Date: 20190204
  Serious: Yes (Other)
  Sender: FDA-Public Use
  Company Number: CN-BAYER-2018-179890

PATIENT
  Age: 55 Year
  Sex: Male

DRUGS (11)
  1. ADALAT [Suspect]
     Active Substance: NIFEDIPINE
     Dosage: UNK
  2. GLUCOBAY [Suspect]
     Active Substance: ACARBOSE
     Dosage: UNK
     Route: 048
  3. ADALAT [Suspect]
     Active Substance: NIFEDIPINE
     Dosage: UNK
  4. ADALAT [Suspect]
     Active Substance: NIFEDIPINE
     Dosage: UNK
  5. GLUCOBAY [Suspect]
     Active Substance: ACARBOSE
     Dosage: UNK
  6. ADALAT [Suspect]
     Active Substance: NIFEDIPINE
     Dosage: UNK
     Route: 048
     Dates: end: 201810
  7. ADALAT [Suspect]
     Active Substance: NIFEDIPINE
     Dosage: UNK
  8. GLUCOBAY [Suspect]
     Active Substance: ACARBOSE
     Dosage: UNK
  9. GLUCOBAY [Suspect]
     Active Substance: ACARBOSE
     Dosage: UNK
  10. GLUCOBAY [Suspect]
     Active Substance: ACARBOSE
     Dosage: UNK
  11. GLUCOBAY [Suspect]
     Active Substance: ACARBOSE
     Dosage: UNK

REACTIONS (5)
  - Diabetes mellitus inadequate control [None]
  - Suspected counterfeit product [None]
  - Blood pressure inadequately controlled [Recovered/Resolved]
  - Suspected product quality issue [None]
  - Poor quality product administered [None]

NARRATIVE: CASE EVENT DATE: 2018
